FAERS Safety Report 7606946-5 (Version None)
Quarter: 2011Q3

REPORT INFORMATION
  Report Type: 
  Country: None (occurrence: None)
  Receive Date: 20110712
  Receipt Date: 20110712
  Transmission Date: 20111222
  Serious: Yes (Other)
  Sender: FDA-Public Use
  Company Number: None

PATIENT
  Sex: Female
  Weight: 76.2406 kg

DRUGS (1)
  1. INDERAL LA [Suspect]

REACTIONS (2)
  - TREMOR [None]
  - PRODUCT SUBSTITUTION ISSUE [None]
